FAERS Safety Report 8319307-0 (Version None)
Quarter: 2012Q2

REPORT INFORMATION
  Report Type: 
  Country: None (occurrence: None)
  Receive Date: 20120426
  Receipt Date: 20120426
  Transmission Date: 20120825
  Serious: No
  Sender: FDA-Public Use
  Company Number: None

PATIENT
  Age: 71 Year
  Sex: Male
  Weight: 166.1 kg

DRUGS (1)
  1. DABIGATRAN [Suspect]
     Indication: ATRIAL FIBRILLATION
     Dosage: 150 MG BID PO
     Route: 048
     Dates: start: 20111028, end: 20111228

REACTIONS (7)
  - URTICARIA [None]
  - HAEMORRHAGE [None]
  - FLATULENCE [None]
  - FAECAL INCONTINENCE [None]
  - RECTAL HAEMORRHAGE [None]
  - PRURITUS [None]
  - ANAL PRURITUS [None]
